FAERS Safety Report 9300308 (Version 2)
Quarter: 2013Q2

REPORT INFORMATION
  Report Type: Spontaneous
  Country: ES (occurrence: ES)
  Receive Date: 20130521
  Receipt Date: 20130531
  Transmission Date: 20140414
  Serious: Yes (Other)
  Sender: FDA-Public Use
  Company Number: ES-JNJFOC-20130507837

PATIENT
  Age: 61 Year
  Sex: Female

DRUGS (1)
  1. CAELYX [Suspect]
     Indication: OVARIAN CANCER
     Route: 042
     Dates: start: 20130201, end: 20130315

REACTIONS (3)
  - Skin reaction [Recovered/Resolved]
  - Ovarian epithelial cancer [Unknown]
  - Inappropriate schedule of drug administration [Recovered/Resolved]
